FAERS Safety Report 9903667 (Version 9)
Quarter: 2014Q2

REPORT INFORMATION
  Report Type: Spontaneous
  Country: CL (occurrence: CL)
  Receive Date: 20140217
  Receipt Date: 20140630
  Transmission Date: 20141212
  Serious: Yes (Death, Hospitalization)
  Sender: FDA-Public Use
  Company Number: CL-BIOMARINAP-CL-2014-102507

PATIENT
  Age: 10 Year
  Sex: Female

DRUGS (2)
  1. NAGLAZYME [Suspect]
     Indication: MUCOPOLYSACCHARIDOSIS VI
     Dosage: 20 MG, QW
     Route: 041
     Dates: start: 20130807
  2. BUDESONIDE [Concomitant]
     Indication: PRODUCT USED FOR UNKNOWN INDICATION
     Dosage: 200 ?G, UNK

REACTIONS (15)
  - Bronchial obstruction [Fatal]
  - Sleep apnoea syndrome [Unknown]
  - Pneumonia bacterial [Recovering/Resolving]
  - Laryngitis [Recovering/Resolving]
  - Obstructive airways disorder [Recovering/Resolving]
  - Respiratory arrest [Recovering/Resolving]
  - Pleural effusion [Unknown]
  - Atelectasis [Unknown]
  - Depression [Unknown]
  - Pneumonia [Recovering/Resolving]
  - Acute respiratory failure [Unknown]
  - Obstruction [Unknown]
  - Oxygen saturation decreased [Unknown]
  - Bradycardia [Unknown]
  - Hepatosplenomegaly [Unknown]
